FAERS Safety Report 19713069 (Version 3)
Quarter: 2021Q3

REPORT INFORMATION
  Report Type: Report from Study
  Country: CO (occurrence: CO)
  Receive Date: 20210816
  Receipt Date: 20210831
  Transmission Date: 20211014
  Serious: Yes (Hospitalization)
  Sender: FDA-Public Use
  Company Number: NVSC2021CO183580

PATIENT
  Age: 42 Year
  Sex: Female
  Weight: 74 kg

DRUGS (2)
  1. COSENTYX [Suspect]
     Active Substance: SECUKINUMAB
     Indication: PSORIASIS
     Dosage: UNK, QMO (STARTED 6 YEARS AGO)
     Route: 058
  2. METHOTREXATE. [Concomitant]
     Active Substance: METHOTREXATE
     Indication: PSORIATIC ARTHROPATHY
     Dosage: 7.5 MG, EVERY 15 DAYS
     Route: 048
     Dates: start: 2005

REACTIONS (9)
  - Pruritus [Unknown]
  - COVID-19 [Unknown]
  - Mass [Unknown]
  - Ageusia [Unknown]
  - Chest discomfort [Unknown]
  - COVID-19 pneumonia [Unknown]
  - Lung opacity [Unknown]
  - Inflammation [Unknown]
  - Device breakage [Unknown]

NARRATIVE: CASE EVENT DATE: 20210101
